FAERS Safety Report 8836988 (Version 2)
Quarter: 2013Q2

REPORT INFORMATION
  Report Type: Report from Study
  Country: JP (occurrence: JP)
  Receive Date: 20121012
  Receipt Date: 20130515
  Transmission Date: 20140414
  Serious: Yes (Other)
  Sender: FDA-Public Use
  Company Number: JP-VERTEX PHARMACEUTICAL INC.-AE-2012-008813

PATIENT
  Age: 75 Year
  Sex: Male

DRUGS (9)
  1. VX-950 (TELAPREVIR) [Suspect]
     Indication: CHRONIC HEPATITIS C
     Dosage: 2250 MG, QD
     Route: 048
     Dates: start: 20120606, end: 20120608
  2. VX-950 (TELAPREVIR) [Suspect]
     Dosage: 1500 MG, QD
     Route: 048
     Dates: start: 20120614, end: 20120709
  3. PEGINTRON [Suspect]
     Indication: CHRONIC HEPATITIS C
     Dosage: 1.5 ?G/KG, WEEKLY
     Route: 058
     Dates: start: 20120606, end: 20120709
  4. RIBAVIRIN [Concomitant]
     Indication: CHRONIC HEPATITIS C
     Dosage: 800 MG, QD
     Route: 048
     Dates: start: 20120606, end: 20120613
  5. RIBAVIRIN [Concomitant]
     Dosage: 600 MG, QD
     Route: 048
     Dates: start: 20120614, end: 20120709
  6. URSO [Concomitant]
     Dosage: 600 MG, QD
     Route: 048
  7. PENTASA [Concomitant]
     Dosage: 6 DF, QD
     Route: 048
  8. TAKEPRON [Concomitant]
     Dosage: 1 DF, QD
     Route: 048
  9. LENDORMIN [Concomitant]
     Dosage: 1 DF, QD
     Route: 048

REACTIONS (1)
  - Renal impairment [Recovered/Resolved]
